FAERS Safety Report 6680836-7 (Version None)
Quarter: 2010Q2

REPORT INFORMATION
  Report Type: 
  Country: None (occurrence: None)
  Receive Date: 20100414
  Receipt Date: 20100405
  Transmission Date: 20101027
  Serious: Yes (Life-Threatening)
  Sender: FDA-Public Use
  Company Number: JP-JNJFOC-20100301562

PATIENT
  Sex: Female

DRUGS (6)
  1. DORIPENEM MONOHYDRATE [Suspect]
     Indication: PYELONEPHRITIS ACUTE
     Route: 041
  2. RECOMODULIN [Suspect]
     Indication: DISSEMINATED INTRAVASCULAR COAGULATION
     Route: 041
  3. ANTITHROMBIN III HUMAN [Concomitant]
     Indication: DISSEMINATED INTRAVASCULAR COAGULATION
     Route: 041
  4. MIDOCIN [Concomitant]
     Indication: PYELONEPHRITIS ACUTE
     Route: 041
  5. OMEPRAL [Concomitant]
     Indication: GASTROINTESTINAL HAEMORRHAGE
     Route: 041
  6. KAYTWO N [Concomitant]
     Indication: VITAMIN K DEFICIENCY
     Route: 042

REACTIONS (1)
  - CONVULSION [None]
